FAERS Safety Report 18585028 (Version 2)
Quarter: 2020Q4

REPORT INFORMATION
  Report Type: Spontaneous
  Country: DE (occurrence: DE)
  Receive Date: 20201207
  Receipt Date: 20201215
  Transmission Date: 20210114
  Serious: Yes (Life-Threatening, Hospitalization, Other)
  Sender: FDA-Public Use
  Company Number: DE-TEVA-2020-DE-1854942

PATIENT
  Age: 53 Year
  Sex: Male
  Weight: 70 kg

DRUGS (1)
  1. FENTANYL TRANSDERMAL SYSTEM [Suspect]
     Active Substance: FENTANYL
     Dosage: UNKNOWN DOSAGE, USED AT FIRST, TOOK AT 20 O^CLOCK
     Route: 002
     Dates: start: 20200419

REACTIONS (5)
  - Coma [Recovered/Resolved]
  - Thermal burn [Unknown]
  - Jealous delusion [Unknown]
  - Aggression [Recovered/Resolved]
  - Disorientation [Recovered/Resolved]

NARRATIVE: CASE EVENT DATE: 20200419
